FAERS Safety Report 8762936 (Version 1)
Quarter: 2012Q4

REPORT INFORMATION
  Report Type: Spontaneous
  Country: US (occurrence: None)
  Receive Date: 20120830
  Receipt Date: 20120830
  Transmission Date: 20130627
  Serious: No
  Sender: FDA-Public Use
  Company Number: None

PATIENT
  Age: 42 Year
  Sex: Female
  Weight: 81.65 kg

DRUGS (1)
  1. LEXAPRO [Suspect]
     Indication: DEPRESSION
     Dosage: 20 mg once a day po
     Route: 048
     Dates: start: 20090101, end: 20120801

REACTIONS (9)
  - Urticaria [None]
  - Cheilitis [None]
  - Dyspnoea [None]
  - Heart rate irregular [None]
  - Arthralgia [None]
  - Scratch [None]
  - Therapy cessation [None]
  - Insomnia [None]
  - Reaction to drug excipients [None]
